FAERS Safety Report 5607701-8 (Version None)
Quarter: 2008Q1

REPORT INFORMATION
  Report Type: 
  Country: None (occurrence: None)
  Receive Date: 20080130
  Receipt Date: 20080129
  Transmission Date: 20080703
  Serious: Yes (Other)
  Sender: FDA-Public Use
  Company Number: GB-BRISTOL-MYERS SQUIBB COMPANY-14057053

PATIENT
  Age: 41 Year
  Sex: Female
  Weight: 51 kg

DRUGS (7)
  1. TAXOL [Suspect]
     Route: 042
  2. BEVACIZUMAB [Concomitant]
     Route: 042
  3. DEXAMETHASONE TAB [Concomitant]
  4. HERCEPTIN [Concomitant]
     Route: 042
  5. HYDROCORTISONE [Concomitant]
  6. PIRITON [Concomitant]
  7. RANITIDINE [Concomitant]

REACTIONS (2)
  - ALOPECIA [None]
  - FEAR [None]
